FAERS Safety Report 8487053-9 (Version None)
Quarter: 2012Q3

REPORT INFORMATION
  Report Type: 
  Country: None (occurrence: None)
  Receive Date: 20120704
  Receipt Date: 20120627
  Transmission Date: 20120928
  Serious: Yes (Hospitalization, Other)
  Sender: FDA-Public Use
  Company Number: PHHY2012CA053891

PATIENT
  Sex: Male

DRUGS (17)
  1. VALPROATE SODIUM [Concomitant]
     Dosage: 500 MG QAM AND 750 MG QHS
  2. CALCIUM CARBONATE [Concomitant]
     Dosage: 1 DF, QD
     Route: 048
     Dates: start: 20120111
  3. COLACE [Concomitant]
     Dosage: 100 MG, BID
  4. DOCUSATE [Concomitant]
     Dosage: 1 DF, BID
     Route: 048
     Dates: start: 20120515
  5. SODIUM BICARBONATE [Concomitant]
     Dosage: 3 DF, BID
     Route: 048
  6. APO-CAL [Concomitant]
     Dosage: 1 DF, TID
     Route: 048
     Dates: start: 20120515
  7. SIMVASTATIN [Concomitant]
     Dosage: 1 DF, QD
     Route: 048
     Dates: start: 20110712
  8. CLOZARIL [Suspect]
     Dosage: 275 MG, DAILY
     Route: 048
     Dates: start: 20110712
  9. ZYLOPRIM [Concomitant]
     Dosage: 1 DF, QD
     Route: 048
     Dates: start: 20120515
  10. OMEPRAZOLE [Concomitant]
     Dosage: 1 DF, QD
     Route: 048
     Dates: start: 20110712
  11. CLOZARIL [Suspect]
     Indication: BIPOLAR DISORDER
     Dosage: 250 MG, DAILY
     Route: 048
     Dates: start: 20021021
  12. DIVALPROEX SODIUM [Concomitant]
     Dosage: 5 DF, (II QAM AND IIIQHS)
     Route: 048
     Dates: start: 20120515
  13. PANTOPRAZOLE [Concomitant]
     Dosage: 1 DF, QD
     Route: 048
     Dates: start: 20120515
  14. ALLOPURINOL [Concomitant]
     Dosage: 100 MG, QD
  15. ROCALTROL [Concomitant]
     Dosage: 3 DF, TIW
     Route: 048
     Dates: start: 20120515
  16. CARVEDILOL [Concomitant]
     Dosage: 1 DF, BID
     Route: 048
     Dates: start: 20120607
  17. PANTOPRAZOLE SODIUM [Concomitant]
     Dosage: 40 MG, QAM

REACTIONS (22)
  - BLOOD BICARBONATE INCREASED [None]
  - PCO2 DECREASED [None]
  - POOR QUALITY SLEEP [None]
  - BASE EXCESS DECREASED [None]
  - AGITATION [None]
  - MANIA [None]
  - LYMPHOCYTE COUNT DECREASED [None]
  - MALAISE [None]
  - HALLUCINATION, VISUAL [None]
  - BLOOD CALCIUM DECREASED [None]
  - BLOOD CREATININE INCREASED [None]
  - BLOOD SODIUM INCREASED [None]
  - URINE ALBUMIN/CREATININE RATIO INCREASED [None]
  - URINARY TRACT INFECTION [None]
  - SPEECH DISORDER [None]
  - HAEMATOCRIT DECREASED [None]
  - HAEMOGLOBIN DECREASED [None]
  - WHITE BLOOD CELL COUNT DECREASED [None]
  - PLATELET COUNT DECREASED [None]
  - BLOOD UREA INCREASED [None]
  - GLOMERULAR FILTRATION RATE DECREASED [None]
  - RED BLOOD CELL COUNT DECREASED [None]
